FAERS Safety Report 5669813-2 (Version None)
Quarter: 2008Q1

REPORT INFORMATION
  Report Type: 
  Country: None (occurrence: None)
  Receive Date: 20080313
  Receipt Date: 20080313
  Transmission Date: 20080703
  Serious: No
  Sender: FDA-Public Use
  Company Number: None

PATIENT
  Age: 19 Year
  Sex: Male
  Weight: 73.4827 kg

DRUGS (1)
  1. SERTRALINE [Suspect]
     Indication: PANIC DISORDER
     Dosage: 100 MG BID PO
     Route: 048

REACTIONS (3)
  - ANXIETY [None]
  - DIZZINESS [None]
  - PHARMACEUTICAL PRODUCT COMPLAINT [None]
